FAERS Safety Report 17338073 (Version 3)
Quarter: 2020Q1

REPORT INFORMATION
  Report Type: Report from Study
  Country: CN (occurrence: CN)
  Receive Date: 20200129
  Receipt Date: 20200320
  Transmission Date: 20200409
  Serious: Yes (Hospitalization, Other)
  Sender: FDA-Public Use
  Company Number: CN-ROCHE-1982701

PATIENT
  Sex: Male
  Weight: 72 kg

DRUGS (5)
  1. AVASTIN [Suspect]
     Active Substance: BEVACIZUMAB
     Route: 041
  2. AVASTIN [Suspect]
     Active Substance: BEVACIZUMAB
     Indication: COLORECTAL CANCER
     Route: 041
     Dates: start: 20161129, end: 20171221
  3. AVASTIN [Suspect]
     Active Substance: BEVACIZUMAB
     Route: 041
     Dates: end: 20190318
  4. AVASTIN [Suspect]
     Active Substance: BEVACIZUMAB
     Route: 041
     Dates: end: 20180426
  5. AVASTIN [Suspect]
     Active Substance: BEVACIZUMAB
     Route: 041
     Dates: end: 20180920

REACTIONS (8)
  - Protein urine present [Unknown]
  - Abdominal pain [Unknown]
  - Creatinine urine increased [Unknown]
  - Renal hydrocele [Unknown]
  - Renal impairment [Unknown]
  - Diarrhoea [Unknown]
  - Renal disorder [Unknown]
  - Nephrolithiasis [Unknown]
